FAERS Safety Report 10275797 (Version 1)
Quarter: 2014Q3

REPORT INFORMATION
  Report Type: Report from Study
  Country: MX (occurrence: MX)
  Receive Date: 20140703
  Receipt Date: 20140703
  Transmission Date: 20150326
  Serious: Yes (Other)
  Sender: FDA-Public Use
  Company Number: PHHY2014MX080611

PATIENT
  Age: 84 Year
  Sex: Female

DRUGS (10)
  1. ONBREZ [Suspect]
     Active Substance: INDACATEROL
     Indication: CHRONIC OBSTRUCTIVE PULMONARY DISEASE
     Dosage: 150 UG, DAILY (1 DF)
     Route: 055
     Dates: start: 201108
  2. EUTIROX [Concomitant]
     Active Substance: LEVOTHYROXINE SODIUM
     Dosage: 75 MG, DAILY (1 DF)
  3. ONBREZ [Suspect]
     Active Substance: INDACATEROL
     Dosage: 150 UG, DAILY (1 DF)
     Route: 055
  4. TASIDOL [Concomitant]
     Dosage: 2 DF, DAILY
  5. TAFIL [Concomitant]
     Active Substance: ALPRAZOLAM
     Dosage: 0.25 MG, DAILY
  6. ASPIRIN PROTEC [Concomitant]
     Dosage: 1 DF, DAILY
  7. AKINETON [Concomitant]
     Active Substance: BIPERIDEN HYDROCHLORIDE
     Dosage: 2 MG, DAILY (1 DF)
  8. LANOXIN [Concomitant]
     Active Substance: DIGOXIN
     Dosage: 1 DF, DAILY
  9. LOSARTAN [Concomitant]
     Active Substance: LOSARTAN
     Dosage: 1 DF, DAILY
  10. SPIRIVA [Concomitant]
     Active Substance: TIOTROPIUM BROMIDE MONOHYDRATE
     Dosage: 1 DF, DAILY

REACTIONS (3)
  - Tendon injury [Not Recovered/Not Resolved]
  - Cystitis [Not Recovered/Not Resolved]
  - Device related infection [Unknown]

NARRATIVE: CASE EVENT DATE: 201309
